FAERS Safety Report 4575935-X (Version None)
Quarter: 2005Q1

REPORT INFORMATION
  Report Type: 
  Country: None (occurrence: None)
  Receive Date: 20050209
  Receipt Date: 20041210
  Transmission Date: 20050727
  Serious: Yes (Death, Life-Threatening, Congenital Anomaly)
  Sender: FDA-Public Use
  Company Number: JP-SANOFI-SYNTHELABO-A01200406328

PATIENT
  Sex: Female
  Weight: 1.758 kg

DRUGS (15)
  1. MILRILA [Suspect]
     Indication: NEONATAL CARDIAC FAILURE
     Dosage: 0.5 MCG/KG/MIN
     Route: 041
     Dates: start: 20020725, end: 20020725
  2. MILRILA [Suspect]
     Dosage: 0.6 MCG/KG/MIN
     Route: 041
     Dates: start: 20020726, end: 20020727
  3. HABEKACIN [Concomitant]
     Indication: NEONATAL INFECTION
     Route: 042
     Dates: start: 20020727, end: 20020727
  4. FLUMARIN [Concomitant]
     Indication: NEONATAL INFECTION
     Route: 042
     Dates: start: 20020727, end: 20020727
  5. MIRACLID [Concomitant]
     Indication: DISSEMINATED INTRAVASCULAR COAGULATION IN NEWBORN
     Dosage: 10000 UNIT
     Route: 042
     Dates: start: 20020726, end: 20020727
  6. MIRACLID [Concomitant]
     Indication: NEONATAL CARDIAC FAILURE
     Dosage: 10000 UNIT
     Route: 042
     Dates: start: 20020726, end: 20020727
  7. ANTHROBIN P [Concomitant]
     Indication: DISSEMINATED INTRAVASCULAR COAGULATION IN NEWBORN
     Dosage: 100 UNIT
     Route: 042
     Dates: start: 20020726, end: 20020727
  8. GLOVENIN-I [Concomitant]
     Indication: NEONATAL INFECTION
     Route: 041
     Dates: start: 20020726, end: 20020726
  9. MIDAZOLAM HCL [Concomitant]
     Indication: SMALL FOR DATES BABY
     Route: 041
     Dates: start: 20020726, end: 20020727
  10. WAKOBITAL [Concomitant]
     Indication: SMALL FOR DATES BABY
     Route: 054
     Dates: start: 20020725, end: 20020726
  11. MEYLON [Concomitant]
     Indication: LATE METABOLIC ACIDOSIS OF NEWBORN
     Route: 042
     Dates: start: 20020725, end: 20020725
  12. GENTACIN [Concomitant]
     Indication: NEONATAL INFECTION
     Dosage: 3-6 MG/DAY
     Route: 042
     Dates: start: 20020725, end: 20020727
  13. VICCILLIN [Concomitant]
     Indication: NEONATAL INFECTION
     Dosage: 120-180 MG/DAY
     Route: 042
     Dates: start: 20020725, end: 20020727
  14. DOBUTREX [Concomitant]
     Indication: NEONATAL CARDIAC FAILURE
     Dosage: 5.5-10 MCG/KG/MIN
     Route: 041
     Dates: start: 20020725, end: 20020727
  15. INOVAN [Concomitant]
     Indication: NEONATAL CARDIAC FAILURE
     Dosage: 5.5-10 MCG/KG/MIN
     Route: 041
     Dates: start: 20020725, end: 20020727

REACTIONS (9)
  - AORTIC INJURY [None]
  - CARDIAC ARREST [None]
  - CARDIAC FAILURE [None]
  - DISSEMINATED INTRAVASCULAR COAGULATION [None]
  - PATENT DUCTUS ARTERIOSUS [None]
  - PULMONARY HAEMORRHAGE [None]
  - PULMONARY OEDEMA [None]
  - RENAL IMPAIRMENT [None]
  - SHOCK HAEMORRHAGIC [None]
